FAERS Safety Report 14770785 (Version 7)
Quarter: 2018Q3

REPORT INFORMATION
  Report Type: Report from Study
  Country: JP (occurrence: JP)
  Receive Date: 20180417
  Receipt Date: 20180831
  Transmission Date: 20181010
  Serious: Yes (Hospitalization)
  Sender: FDA-Public Use
  Company Number: JP-PFIZER INC-2018148892

PATIENT
  Age: 20 Year
  Sex: Male
  Weight: 57 kg

DRUGS (2)
  1. SIROLIMUS. [Suspect]
     Active Substance: SIROLIMUS
     Indication: FIBRODYSPLASIA OSSIFICANS PROGRESSIVA
     Dosage: 2 MG, 1X/DAY (2 MG, 1 IN 1 D)
     Route: 048
     Dates: start: 20180316, end: 20180409
  2. SIROLIMUS. [Suspect]
     Active Substance: SIROLIMUS
     Dosage: 2 MG, 1X/DAY (2 MG, 1 IN 1 D)
     Route: 048
     Dates: start: 20180419

REACTIONS (2)
  - Decreased appetite [Recovered/Resolved]
  - Decreased appetite [Recovered/Resolved]

NARRATIVE: CASE EVENT DATE: 20180408
